FAERS Safety Report 24539471 (Version 1)
Quarter: 2024Q4

REPORT INFORMATION
  Report Type: Spontaneous
  Country: US (occurrence: None)
  Receive Date: 20241022
  Receipt Date: 20241022
  Transmission Date: 20250114
  Serious: Yes (Death)
  Sender: Public
  Company Number: None

PATIENT
  Age: 72 Year
  Sex: Female

DRUGS (10)
  1. OFEV [Suspect]
     Active Substance: NINTEDANIB
     Dosage: FREQUENCY : TWICE A DAY;?
     Route: 048
     Dates: start: 20220909, end: 20240911
  2. OXYGEN INTRANASAL [Concomitant]
  3. PREDNISONE [Concomitant]
  4. CELLCEPT [Concomitant]
  5. PRESERVISION AREDS-2 [Concomitant]
  6. TYLENOL [Concomitant]
  7. CULTURELLE [Concomitant]
  8. FOXAMAX [Concomitant]
  9. FAMOTIDINE [Concomitant]
  10. ALBUTEROL HFA [Concomitant]

REACTIONS (2)
  - Weight decreased [None]
  - Drug ineffective [None]

NARRATIVE: CASE EVENT DATE: 20240926
